FAERS Safety Report 16362175 (Version 2)
Quarter: 2019Q2

REPORT INFORMATION
  Report Type: Spontaneous
  Country: US (occurrence: US)
  Receive Date: 20190528
  Receipt Date: 20190606
  Transmission Date: 20190711
  Serious: No
  Sender: FDA-Public Use
  Company Number: US-SUNOVION-2019SUN002153

PATIENT
  Age: 93 Year
  Sex: Male

DRUGS (2)
  1. APTIOM [Suspect]
     Active Substance: ESLICARBAZEPINE ACETATE
     Indication: DEMENTIA
     Dosage: 400 MG
     Route: 048
  2. APTIOM [Suspect]
     Active Substance: ESLICARBAZEPINE ACETATE
     Indication: AGGRESSION
     Dosage: 200 MG
     Route: 048

REACTIONS (3)
  - Dementia [Unknown]
  - Off label use [Unknown]
  - Drug ineffective for unapproved indication [Unknown]
